FAERS Safety Report 10143432 (Version 1)
Quarter: 2014Q2

REPORT INFORMATION
  Report Type: Spontaneous
  Country: US (occurrence: None)
  Receive Date: 20140429
  Receipt Date: 20140429
  Transmission Date: 20141212
  Serious: No
  Sender: FDA-Public Use
  Company Number: None

PATIENT
  Sex: Female

DRUGS (2)
  1. ESZOPICLONE [Suspect]
     Indication: INSOMNIA
     Route: 048
     Dates: start: 20140211, end: 20140422
  2. VISTARIL [Suspect]
     Indication: INSOMNIA
     Dates: start: 20140123, end: 20140202

REACTIONS (1)
  - Drug ineffective [None]
